FAERS Safety Report 25293427 (Version 1)
Quarter: 2025Q2

REPORT INFORMATION
  Report Type: Spontaneous
  Country: US (occurrence: US)
  Receive Date: 20250510
  Receipt Date: 20250510
  Transmission Date: 20250717
  Serious: No
  Sender: SANOFI AVENTIS
  Company Number: US-SA-2025SA125730

PATIENT
  Sex: Male

DRUGS (6)
  1. DUPIXENT [Suspect]
     Active Substance: DUPILUMAB
     Indication: Dermatitis atopic
     Dosage: 200 MG, QOW
     Route: 058
  2. CELEBREX [Concomitant]
     Active Substance: CELECOXIB
  3. FAMOTIDINE [Concomitant]
     Active Substance: FAMOTIDINE
  4. KINERET [Concomitant]
     Active Substance: ANAKINRA
  5. OLUMIANT [Concomitant]
     Active Substance: BARICITINIB
  6. ZYRTEC [Concomitant]
     Active Substance: CETIRIZINE HYDROCHLORIDE

REACTIONS (3)
  - Discomfort [Unknown]
  - Sleep disorder due to a general medical condition [Unknown]
  - Rash [Unknown]
